FAERS Safety Report 6286299-8 (Version None)
Quarter: 2009Q3

REPORT INFORMATION
  Report Type: 
  Country: None (occurrence: None)
  Receive Date: 20090724
  Receipt Date: 20090713
  Transmission Date: 20100115
  Serious: Yes (Hospitalization)
  Sender: FDA-Public Use
  Company Number: 020249913A

PATIENT
  Age: 81 Year
  Sex: Male

DRUGS (5)
  1. ORABASE PASTE .21OZ [Suspect]
     Dosage: ORAL, 3X DAILY
     Route: 048
     Dates: start: 20080101
  2. LISINOPRIL [Concomitant]
  3. METOPROLOL TARTRATE [Concomitant]
  4. NIASPAN [Concomitant]
  5. ZOCOR [Concomitant]

REACTIONS (4)
  - BLOOD PRESSURE DECREASED [None]
  - DEHYDRATION [None]
  - DIARRHOEA [None]
  - HYPOAESTHESIA ORAL [None]
